FAERS Safety Report 23210340 (Version 2)
Quarter: 2023Q4

REPORT INFORMATION
  Report Type: Report from Study
  Country: FR (occurrence: FR)
  Receive Date: 20231121
  Receipt Date: 20231207
  Transmission Date: 20240110
  Serious: Yes (Other)
  Sender: FDA-Public Use
  Company Number: FR-JNJFOC-20231152034

PATIENT
  Age: 51 Year
  Sex: Male

DRUGS (2)
  1. SPRAVATO [Suspect]
     Active Substance: ESKETAMINE
     Indication: Depression
     Dates: start: 20230502, end: 20230515
  2. SPRAVATO [Suspect]
     Active Substance: ESKETAMINE
     Dates: start: 20230515, end: 20231019

REACTIONS (1)
  - Dependence [Recovering/Resolving]

NARRATIVE: CASE EVENT DATE: 20230701
